FAERS Safety Report 17514718 (Version 1)
Quarter: 2020Q1

REPORT INFORMATION
  Report Type: Report from Study
  Country: BE (occurrence: BE)
  Receive Date: 20200309
  Receipt Date: 20200309
  Transmission Date: 20200409
  Serious: Yes (Other)
  Sender: FDA-Public Use
  Company Number: BE-EMD SERONO-9149808

PATIENT
  Sex: Female

DRUGS (1)
  1. REBIF [Suspect]
     Active Substance: INTERFERON BETA-1A
     Indication: PRODUCT USED FOR UNKNOWN INDICATION
     Route: 058
     Dates: start: 20050301

REACTIONS (3)
  - Injection site erythema [Unknown]
  - Non-Hodgkin^s lymphoma [Unknown]
  - Injection site induration [Unknown]

NARRATIVE: CASE EVENT DATE: 2015
